FAERS Safety Report 13287059 (Version 1)
Quarter: 2017Q1

REPORT INFORMATION
  Report Type: Spontaneous
  Country: FR (occurrence: FR)
  Receive Date: 20170302
  Receipt Date: 20170302
  Transmission Date: 20170428
  Serious: Yes (Other)
  Sender: FDA-Public Use
  Company Number: FR-BAYER-2017-032724

PATIENT
  Sex: Male
  Weight: 1.58 kg

DRUGS (1)
  1. JAYDESS [Suspect]
     Active Substance: LEVONORGESTREL
     Dosage: UNK
     Route: 064
     Dates: start: 20151009

REACTIONS (3)
  - Premature baby [Recovered/Resolved]
  - Low birth weight baby [None]
  - Foetal exposure during pregnancy [None]
